FAERS Safety Report 4423699-2 (Version None)
Quarter: 2004Q3

REPORT INFORMATION
  Report Type: 
  Country: None (occurrence: None)
  Receive Date: 20040714
  Receipt Date: 20040525
  Transmission Date: 20050211
  Serious: Yes (Other)
  Sender: FDA-Public Use
  Company Number: HQWYE141728MAY04

PATIENT
  Age: 44 Year
  Sex: Male
  Weight: 106.69 kg

DRUGS (5)
  1. ALAVERT [Suspect]
     Indication: NASAL CONGESTION
     Dosage: 1 TABLET X 1, ORAL
     Route: 048
     Dates: start: 20040524, end: 20040524
  2. ALAVERT [Suspect]
     Indication: SNEEZING
     Dosage: 1 TABLET X 1, ORAL
     Route: 048
     Dates: start: 20040524, end: 20040524
  3. AZAMACORT (TRIAMCINOLONE ACETONIDE) [Concomitant]
  4. ALBUTEROL [Concomitant]
  5. ALTACE [Concomitant]

REACTIONS (1)
  - PANIC ATTACK [None]
